FAERS Safety Report 25319661 (Version 1)
Quarter: 2025Q2

REPORT INFORMATION
  Report Type: Spontaneous
  Country: US (occurrence: None)
  Receive Date: 20250515
  Receipt Date: 20250515
  Transmission Date: 20250716
  Serious: No
  Sender: FDA-CTU
  Company Number: None

PATIENT
  Age: 55 Year
  Sex: Male
  Weight: 74.39 kg

DRUGS (3)
  1. SUTENT [Suspect]
     Active Substance: SUNITINIB MALATE
     Indication: Neoplasm malignant
     Dosage: OTHER QUANTITY : 1 CAP;?FREQUENCY : DAILY;?
     Route: 048
     Dates: start: 20241001
  2. FERROUS SULFATE [Concomitant]
     Active Substance: FERROUS SULFATE
  3. METFORMIN [Concomitant]
     Active Substance: METFORMIN HYDROCHLORIDE

REACTIONS (5)
  - Taste disorder [None]
  - Insomnia [None]
  - Blister [None]
  - Pruritus [None]
  - Solar dermatitis [None]

NARRATIVE: CASE EVENT DATE: 20250514
